FAERS Safety Report 5581318-6 (Version None)
Quarter: 2008Q1

REPORT INFORMATION
  Report Type: 
  Country: None (occurrence: None)
  Receive Date: 20080104
  Receipt Date: 20071226
  Transmission Date: 20080703
  Serious: Yes (Hospitalization)
  Sender: FDA-Public Use
  Company Number: PHBS2007JP17399

PATIENT
  Age: 85 Year
  Sex: Female
  Weight: 40 kg

DRUGS (12)
  1. GLEEVEC [Suspect]
     Indication: ACUTE LYMPHOCYTIC LEUKAEMIA
     Dosage: 600 MG/D
     Route: 048
     Dates: start: 20070817, end: 20071002
  2. GLEEVEC [Suspect]
     Dosage: 600 MG/D
     Route: 048
     Dates: start: 20070428, end: 20070528
  3. GLEEVEC [Suspect]
     Dosage: 600 MG/D
     Route: 048
     Dates: start: 20070629, end: 20070805
  4. PREDNISOLONE [Suspect]
     Indication: ACUTE LYMPHOCYTIC LEUKAEMIA
     Dosage: 60 MG/D
     Route: 042
     Dates: start: 20070425, end: 20070604
  5. ONCOVIN [Suspect]
     Indication: ACUTE LYMPHOCYTIC LEUKAEMIA
     Dosage: 1.9 MG/D EVERY 7 DAYS
     Route: 042
     Dates: start: 20070502, end: 20070523
  6. ZYLORIC [Concomitant]
     Indication: HYPERURICAEMIA
     Dosage: 300 MG/D
     Route: 048
     Dates: start: 20070425
  7. GASTER D [Concomitant]
     Indication: GASTRIC ULCER
     Dosage: 20 MG/D
     Route: 048
     Dates: start: 20070427
  8. MAGMITT KENEI [Concomitant]
     Indication: CONSTIPATION
     Dosage: 1980 MG/D
     Route: 048
     Dates: start: 20070427
  9. ALOSENN [Concomitant]
     Indication: CONSTIPATION
     Dosage: 1 G/D
     Route: 048
     Dates: start: 20070427
  10. LAC B [Concomitant]
     Indication: CONSTIPATION
     Dosage: 3 G/D
     Route: 048
     Dates: start: 20070427
  11. GLYSENNID [Concomitant]
     Indication: CONSTIPATION
     Dosage: 2 DF/D
     Route: 048
     Dates: start: 20070427
  12. THYRADIN S [Concomitant]
     Indication: HYPOTHYROIDISM
     Dosage: 75 MG/D
     Route: 048
     Dates: start: 20070427

REACTIONS (11)
  - CARDIAC FAILURE [None]
  - CHEST X-RAY ABNORMAL [None]
  - DYSPNOEA [None]
  - EJECTION FRACTION DECREASED [None]
  - HYPOTENSION [None]
  - NAUSEA [None]
  - OEDEMA PERIPHERAL [None]
  - OXYGEN SATURATION DECREASED [None]
  - PLEURAL EFFUSION [None]
  - PNEUMONIA ASPIRATION [None]
  - PYREXIA [None]
